FAERS Safety Report 23689145 (Version 1)
Quarter: 2024Q1

REPORT INFORMATION
  Report Type: Spontaneous
  Country: IT (occurrence: IT)
  Receive Date: 20240330
  Receipt Date: 20240330
  Transmission Date: 20240409
  Serious: Yes (Hospitalization)
  Sender: FDA-Public Use
  Company Number: None

PATIENT
  Age: 64 Year
  Sex: Male

DRUGS (6)
  1. XARELTO [Suspect]
     Active Substance: RIVAROXABAN
     Indication: Anticoagulant therapy
     Route: 048
  2. FLECAINIDE [Concomitant]
     Active Substance: FLECAINIDE
  3. TAPAZOLE [Concomitant]
     Active Substance: METHIMAZOLE
  4. BISOPROLOL FUMARATE [Concomitant]
     Active Substance: BISOPROLOL FUMARATE
  5. PANTOPRAZOLE SODIUM [Concomitant]
     Active Substance: PANTOPRAZOLE SODIUM
  6. OLMESARTAN MEDOXOMIL [Concomitant]
     Active Substance: OLMESARTAN MEDOXOMIL

REACTIONS (1)
  - Conjunctival hyperaemia [Recovering/Resolving]

NARRATIVE: CASE EVENT DATE: 20240314
